FAERS Safety Report 24393124 (Version 3)
Quarter: 2024Q4

REPORT INFORMATION
  Report Type: Spontaneous
  Country: CA (occurrence: CA)
  Receive Date: 20241003
  Receipt Date: 20241125
  Transmission Date: 20250115
  Serious: Yes (Hospitalization, Other)
  Sender: DAIICHI
  Company Number: CA-AstraZeneca-CH-00709524A

PATIENT
  Age: 73 Year
  Sex: Female

DRUGS (4)
  1. TRASTUZUMAB DERUXTECAN [Suspect]
     Active Substance: TRASTUZUMAB DERUXTECAN
     Indication: HER2 positive breast cancer
     Dosage: 486 MG, ONCE EVERY 3 WK
     Route: 042
  2. TRASTUZUMAB DERUXTECAN [Suspect]
     Active Substance: TRASTUZUMAB DERUXTECAN
     Dosage: 486 MG, ONCE EVERY 3 WK
     Route: 042
  3. TRASTUZUMAB DERUXTECAN [Suspect]
     Active Substance: TRASTUZUMAB DERUXTECAN
     Dosage: 486 MG, ONCE EVERY 3 WK
     Route: 042
  4. TRASTUZUMAB DERUXTECAN [Suspect]
     Active Substance: TRASTUZUMAB DERUXTECAN
     Dosage: 486 MG, ONCE EVERY 3 WK
     Route: 042

REACTIONS (6)
  - Hepatic cirrhosis [Unknown]
  - Blood glucose abnormal [Unknown]
  - Confusional state [Unknown]
  - Fall [Unknown]
  - Metabolic dysfunction-associated steatohepatitis [Unknown]
  - Inappropriate schedule of product administration [Unknown]
